FAERS Safety Report 10144208 (Version 2)
Quarter: 2014Q2

REPORT INFORMATION
  Report Type: Spontaneous
  Country: US (occurrence: US)
  Receive Date: 20140430
  Receipt Date: 20140529
  Transmission Date: 20141212
  Serious: No
  Sender: FDA-Public Use
  Company Number: US-LUNDBECK-DKLU1098844

PATIENT
  Age: 24 Year
  Sex: Female
  Weight: 43 kg

DRUGS (7)
  1. SABRIL     (TABLET) [Suspect]
     Indication: COMPLEX PARTIAL SEIZURES
     Route: 048
     Dates: start: 20140305
  2. ONFI [Concomitant]
     Indication: PRODUCT USED FOR UNKNOWN INDICATION
  3. VIMPAT [Concomitant]
     Indication: PRODUCT USED FOR UNKNOWN INDICATION
  4. KEPPRA [Concomitant]
     Indication: PRODUCT USED FOR UNKNOWN INDICATION
  5. GEODON [Concomitant]
     Indication: PRODUCT USED FOR UNKNOWN INDICATION
  6. SCOPOLAMINE [Concomitant]
     Indication: PRODUCT USED FOR UNKNOWN INDICATION
  7. SINGULAIR [Concomitant]
     Indication: PRODUCT USED FOR UNKNOWN INDICATION

REACTIONS (1)
  - Abnormal behaviour [Recovered/Resolved]
